FAERS Safety Report 6013211-9 (Version None)
Quarter: 2008Q4

REPORT INFORMATION
  Report Type: 
  Country: None (occurrence: None)
  Receive Date: 20081212
  Receipt Date: 20071022
  Transmission Date: 20090506
  Serious: Yes (Hospitalization)
  Sender: FDA-Public Use
  Company Number: 527524

PATIENT
  Age: 51 Year
  Sex: Female

DRUGS (4)
  1. VALIUM [Suspect]
     Indication: UNEVALUABLE EVENT
     Dosage: ORAL
     Route: 048
     Dates: start: 20071020
  2. KLONOPIN [Suspect]
     Indication: DRUG USE FOR UNKNOWN INDICATION
     Dosage: ORAL
     Route: 048
     Dates: start: 20071020
  3. XANAX [Concomitant]
  4. PERCOCET (OXYCODONE/PARACETAMOL) [Concomitant]

REACTIONS (9)
  - BLOOD PRESSURE DIASTOLIC DECREASED [None]
  - BLOOD URINE PRESENT [None]
  - CHEST PAIN [None]
  - CRYING [None]
  - CRYSTAL URINE [None]
  - DIZZINESS [None]
  - GLOSSODYNIA [None]
  - PAIN [None]
  - PAIN IN JAW [None]
